FAERS Safety Report 7762842-4 (Version None)
Quarter: 2011Q3

REPORT INFORMATION
  Report Type: 
  Country: None (occurrence: None)
  Receive Date: 20110920
  Receipt Date: 20110914
  Transmission Date: 20111222
  Serious: Yes (Other)
  Sender: FDA-Public Use
  Company Number: JP-MERCK-1109USA01638

PATIENT

DRUGS (7)
  1. BLEO [Concomitant]
     Indication: LYMPHOMA
     Route: 065
  2. DACARBAZINE [Concomitant]
     Indication: LYMPHOMA
     Route: 065
  3. EXAL [Concomitant]
     Indication: LYMPHOMA
     Route: 065
  4. DOXORUBICIN HYDROCHLORIDE [Concomitant]
     Indication: LYMPHOMA
     Route: 065
  5. EMEND [Suspect]
     Route: 048
     Dates: start: 20110101, end: 20110101
  6. EMEND [Suspect]
     Indication: PROPHYLAXIS OF NAUSEA AND VOMITING
     Route: 048
     Dates: start: 20110101, end: 20110101
  7. NAPROXEN [Suspect]
     Route: 048

REACTIONS (1)
  - AGRANULOCYTOSIS [None]
